FAERS Safety Report 6545564-7 (Version None)
Quarter: 2010Q2

REPORT INFORMATION
  Report Type: 
  Country: None (occurrence: None)
  Receive Date: 20100121
  Receipt Date: 20100112
  Transmission Date: 20101027
  Serious: Yes (Other)
  Sender: FDA-Public Use
  Company Number: US-JNJFOC-20091001094

PATIENT
  Sex: Male
  Weight: 16.78 kg

DRUGS (11)
  1. CHILDREN'S TYLENOL SUSPENSION [Suspect]
     Indication: OROPHARYNGEAL PAIN
     Dosage: 240MG EVERY 4-6 HOURS
     Route: 048
  2. CHILDREN'S TYLENOL SUSPENSION [Suspect]
     Route: 048
  3. CHILDREN'S TYLENOL SUSPENSION [Suspect]
     Indication: PHARYNGITIS
     Route: 048
  4. CHILDREN'S TYLENOL SUSPENSION [Suspect]
     Dosage: 240MG EVERY 4-6 HOURS
     Route: 048
  5. CHILDREN'S TYLENOL SUSPENSION [Suspect]
     Indication: COUGH
     Route: 048
  6. CHILDREN'S TYLENOL SUSPENSION [Suspect]
     Dosage: 240MG EVERY 4-6 HOURS
     Route: 048
  7. CHILDREN'S TYLENOL SUSPENSION [Suspect]
     Indication: PYREXIA
     Route: 048
  8. CHILDREN'S TYLENOL SUSPENSION [Suspect]
     Dosage: 240MG EVERY 4-6 HOURS
     Route: 048
  9. ADVIL [Concomitant]
     Indication: OROPHARYNGEAL PAIN
  10. ADVIL [Concomitant]
     Indication: COUGH
  11. ADVIL [Concomitant]
     Indication: PYREXIA

REACTIONS (5)
  - COUGH [None]
  - PRODUCT QUALITY ISSUE [None]
  - PYREXIA [None]
  - RHINORRHOEA [None]
  - TRANSMISSION OF AN INFECTIOUS AGENT VIA A MEDICINAL PRODUCT [None]
